FAERS Safety Report 23580277 (Version 3)
Quarter: 2024Q2

REPORT INFORMATION
  Report Type: Spontaneous
  Country: US (occurrence: US)
  Receive Date: 20240229
  Receipt Date: 20240402
  Transmission Date: 20240715
  Serious: Yes (Hospitalization, Other)
  Sender: FDA-Public Use
  Company Number: US-Calliditas-2024CAL00295

PATIENT
  Age: 52 Year
  Sex: Male
  Weight: 115 kg

DRUGS (17)
  1. TARPEYO [Suspect]
     Active Substance: BUDESONIDE
     Indication: Haematuria
     Dosage: 16 MG (4 MG CAPSULES) ONCE DAILY
     Route: 048
     Dates: start: 20230929
  2. KETOCONAZOLE [Concomitant]
     Active Substance: KETOCONAZOLE
  3. ALBUTEROL SULFATE [Concomitant]
     Active Substance: ALBUTEROL SULFATE
  4. TRAZODONE [Concomitant]
     Active Substance: TRAZODONE HYDROCHLORIDE
  5. NIFEDIPINE [Concomitant]
     Active Substance: NIFEDIPINE
  6. MONTELUKAST [Concomitant]
     Active Substance: MONTELUKAST SODIUM
  7. VITAMIN D2 [Concomitant]
     Active Substance: ERGOCALCIFEROL
  8. LEVOTHYROXINE [Concomitant]
     Active Substance: LEVOTHYROXINE\LEVOTHYROXINE SODIUM
  9. FUROSEMIDE [Concomitant]
     Active Substance: FUROSEMIDE
  10. CALCITRIOL [Concomitant]
     Active Substance: CALCITRIOL
  11. ESCITALOPRAM [Concomitant]
     Active Substance: ESCITALOPRAM OXALATE
  12. ARIPIPRAZOLE [Concomitant]
     Active Substance: ARIPIPRAZOLE
  13. VALSARTAN [Concomitant]
     Active Substance: VALSARTAN
  14. ROSUVASTATIN [Concomitant]
     Active Substance: ROSUVASTATIN
  15. SEVELAMER CARBONATE [Concomitant]
     Active Substance: SEVELAMER CARBONATE
     Dosage: TIME INTERVAL:
  16. MELATONIN [Concomitant]
     Active Substance: MELATONIN
  17. FLUTICASONE FUROATE\VILANTEROL TRIFENATATE [Concomitant]
     Active Substance: FLUTICASONE FUROATE\VILANTEROL TRIFENATATE

REACTIONS (5)
  - Acute kidney injury [Not Recovered/Not Resolved]
  - Dialysis [Not Recovered/Not Resolved]
  - Hyperkalaemia [Recovered/Resolved]
  - Asthma [Recovered/Resolved]
  - Respiratory syncytial virus infection [Recovered/Resolved]

NARRATIVE: CASE EVENT DATE: 20240204
